FAERS Safety Report 7438881-X (Version None)
Quarter: 2011Q2

REPORT INFORMATION
  Report Type: 
  Country: None (occurrence: None)
  Receive Date: 20110426
  Receipt Date: 20110413
  Transmission Date: 20111010
  Serious: Yes (Hospitalization)
  Sender: FDA-Public Use
  Company Number: FR-GENENTECH-317036

PATIENT
  Sex: Male

DRUGS (9)
  1. RITUXIMAB [Suspect]
     Dosage: UNK
     Route: 041
     Dates: start: 20091027
  2. KARDEGIC [Concomitant]
     Indication: PRODUCT USED FOR UNKNOWN INDICATION
     Dosage: UNK
     Dates: start: 20100311, end: 20100418
  3. RITUXIMAB [Suspect]
     Indication: CHRONIC LYMPHOCYTIC LEUKAEMIA
     Dosage: UNK
     Route: 041
     Dates: start: 20090309
  4. RITUXIMAB [Suspect]
     Dosage: UNK
     Route: 041
     Dates: start: 20090901
  5. RITUXIMAB [Suspect]
     Dosage: UNK
     Route: 041
     Dates: start: 20091222, end: 20091222
  6. ZELITREX [Concomitant]
     Indication: PRODUCT USED FOR UNKNOWN INDICATION
     Dosage: 500 MG, BID
     Dates: start: 20090225
  7. TEGELINE [Concomitant]
     Indication: PRODUCT USED FOR UNKNOWN INDICATION
     Dosage: UNK
     Dates: start: 20090420
  8. ACETAMINOPHEN [Concomitant]
     Indication: PRODUCT USED FOR UNKNOWN INDICATION
     Dosage: 1 G, UNK
  9. PIASCLEDINE [Concomitant]
     Indication: PRODUCT USED FOR UNKNOWN INDICATION
     Dosage: UNK

REACTIONS (1)
  - ORTHOSTATIC HYPOTENSION [None]
